FAERS Safety Report 11921764 (Version 2)
Quarter: 2016Q1

REPORT INFORMATION
  Report Type: Spontaneous
  Country: US (occurrence: US)
  Receive Date: 20160115
  Receipt Date: 20160120
  Transmission Date: 20160526
  Serious: No
  Sender: FDA-Public Use
  Company Number: US-ASTRAZENECA-2016SE03670

PATIENT
  Age: 83 Year
  Sex: Female
  Weight: 49 kg

DRUGS (2)
  1. ESOMEPRAZOLE MAGNESIUM. [Suspect]
     Active Substance: ESOMEPRAZOLE MAGNESIUM
     Dosage: GENERIC
     Route: 065
  2. NEXIUM [Suspect]
     Active Substance: ESOMEPRAZOLE MAGNESIUM
     Dosage: PATIENT HISTORY
     Route: 065

REACTIONS (3)
  - Onychomadesis [Unknown]
  - Drug hypersensitivity [Unknown]
  - Skin exfoliation [Unknown]

NARRATIVE: CASE EVENT DATE: 201508
